FAERS Safety Report 8813654 (Version 1)
Quarter: 2012Q4

REPORT INFORMATION
  Report Type: 
  Country: BR (occurrence: BR)
  Receive Date: 20120927
  Receipt Date: 20120927
  Transmission Date: 20130627
  Serious: Yes (Death)
  Sender: FDA-Public Use
  Company Number: PHHY2012BR084180

PATIENT
  Age: 15 Year
  Sex: Male

DRUGS (1)
  1. RITALINA [Suspect]
     Dosage: UNK UKN, UNK

REACTIONS (1)
  - Completed suicide [Fatal]
